FAERS Safety Report 20547060 (Version 1)
Quarter: 2022Q1

REPORT INFORMATION
  Report Type: Report from Study
  Country: US (occurrence: None)
  Receive Date: 20220303
  Receipt Date: 20220303
  Transmission Date: 20220423
  Serious: Yes (Death, Hospitalization)
  Sender: FDA-Public Use
  Company Number: US-ROCHE-2842692

PATIENT
  Age: 45 Year
  Sex: Male
  Weight: 85.9 kg

DRUGS (25)
  1. POLATUZUMAB VEDOTIN [Suspect]
     Active Substance: POLATUZUMAB VEDOTIN
     Indication: Diffuse large B-cell lymphoma refractory
     Dosage: ON 17/APR/2021, HE RECEIVED THE LAST DOSE OF POLATUZUMAB VEDOTIN PRIOR TO ONSET OF ANORECTAL INFECTI
     Route: 042
     Dates: start: 20210415
  2. POLATUZUMAB VEDOTIN [Suspect]
     Active Substance: POLATUZUMAB VEDOTIN
     Route: 042
     Dates: start: 20211207
  3. RITUXIMAB [Suspect]
     Active Substance: RITUXIMAB
     Indication: Diffuse large B-cell lymphoma refractory
     Dosage: ON 17/APR/2021, HE RECEIVED THE LAST DOSE OF RITUXIMAB PRIOR TO ONSET OF ANORECTAL INFECTION. ?ON 14
     Route: 042
     Dates: start: 20210415
  4. RITUXIMAB [Suspect]
     Active Substance: RITUXIMAB
     Route: 042
     Dates: start: 20211207
  5. IFOSFAMIDE [Suspect]
     Active Substance: IFOSFAMIDE
     Indication: Diffuse large B-cell lymphoma refractory
     Dosage: ON 17/APR/2021, HE RECEIVED THE LAST DOSE OF IFOSFAMIDE PRIOR TO ONSET OF ANORECTAL INFECTION. ?ON 1
     Route: 042
     Dates: start: 20210415
  6. IFOSFAMIDE [Suspect]
     Active Substance: IFOSFAMIDE
     Route: 042
     Dates: start: 20211207
  7. CARBOPLATIN [Suspect]
     Active Substance: CARBOPLATIN
     Indication: Diffuse large B-cell lymphoma refractory
     Dosage: ON 17/APR/2021, HE RECEIVED THE LAST DOSE OF CARBOPLATIN PRIOR TO ONSET OF ANORECTAL INFECTION. ?ON
     Route: 042
     Dates: start: 20210415
  8. CARBOPLATIN [Suspect]
     Active Substance: CARBOPLATIN
     Route: 042
     Dates: start: 20211207
  9. ETOPOSIDE [Suspect]
     Active Substance: ETOPOSIDE
     Indication: Diffuse large B-cell lymphoma refractory
     Dosage: ON 17/APR/2021, HE RECEIVED THE LAST DOSE OF ETOPOSIDE PRIOR TO ONSET OF ANORECTAL INFECTION. ?ON 14
     Route: 042
     Dates: start: 20210415
  10. ETOPOSIDE [Suspect]
     Active Substance: ETOPOSIDE
     Dosage: ON 17/APR/2021, HE RECEIVED THE LAST DOSE OF ETOPOSIDE PRIOR TO ONSET OF ANORECTAL INFECTION. ?ON 14
     Route: 042
     Dates: start: 20211207
  11. LEVOPHED [Concomitant]
     Active Substance: NOREPINEPHRINE BITARTRATE
  12. DOPAMINE [Concomitant]
     Active Substance: DOPAMINE HYDROCHLORIDE
  13. OXYGEN [Concomitant]
     Active Substance: OXYGEN
  14. SODIUM BICARBONATE [Concomitant]
     Active Substance: SODIUM BICARBONATE
  15. AZTREONAM [Concomitant]
     Active Substance: AZTREONAM
  16. CEFEPIME [Concomitant]
     Active Substance: CEFEPIME HYDROCHLORIDE
  17. HYDROCORTISONE [Concomitant]
     Active Substance: HYDROCORTISONE
  18. TOBRAMYCIN [Concomitant]
     Active Substance: TOBRAMYCIN
     Route: 042
  19. AVYCAZ [Concomitant]
     Active Substance: AVIBACTAM SODIUM\CEFTAZIDIME
  20. ZYVOX [Concomitant]
     Active Substance: LINEZOLID
  21. EPINEPHRINE [Concomitant]
     Active Substance: EPINEPHRINE
  22. NEO-SYNEPHRINE [Concomitant]
     Active Substance: PHENYLEPHRINE HYDROCHLORIDE
  23. VASOPRESSIN [Concomitant]
     Active Substance: VASOPRESSIN
  24. DOBUTAMINE [Concomitant]
     Active Substance: DOBUTAMINE HYDROCHLORIDE
  25. SOLU-MEDROL [Concomitant]
     Active Substance: METHYLPREDNISOLONE SODIUM SUCCINATE
     Dates: start: 20210705

REACTIONS (3)
  - Anorectal infection [Recovered/Resolved]
  - Sepsis [Fatal]
  - Respiratory failure [Fatal]

NARRATIVE: CASE EVENT DATE: 20210505
